FAERS Safety Report 8443663-6 (Version None)
Quarter: 2012Q2

REPORT INFORMATION
  Report Type: 
  Country: None (occurrence: None)
  Receive Date: 20120618
  Receipt Date: 20120613
  Transmission Date: 20120825
  Serious: Yes (Death)
  Sender: FDA-Public Use
  Company Number: DE-JNJFOC-20120605775

PATIENT
  Age: 48 Year
  Sex: Male

DRUGS (5)
  1. RAMIPRIL [Concomitant]
     Route: 048
     Dates: end: 20120414
  2. EUNERPAN [Suspect]
     Indication: PRODUCT USED FOR UNKNOWN INDICATION
     Route: 048
  3. CONCOR [Concomitant]
     Route: 048
     Dates: end: 20120414
  4. BUPROPION HYDROCHLORIDE [Suspect]
     Indication: PRODUCT USED FOR UNKNOWN INDICATION
     Route: 048
     Dates: end: 20120414
  5. RISPERDAL [Suspect]
     Indication: PRODUCT USED FOR UNKNOWN INDICATION
     Route: 048
     Dates: end: 20120414

REACTIONS (3)
  - VOMITING [None]
  - RESTLESSNESS [None]
  - DEATH [None]
